FAERS Safety Report 8065624-1 (Version None)
Quarter: 2012Q1

REPORT INFORMATION
  Report Type: 
  Country: None (occurrence: None)
  Receive Date: 20120117
  Receipt Date: 20120104
  Transmission Date: 20120608
  Serious: Yes (Hospitalization)
  Sender: FDA-Public Use
  Company Number: 1000026944

PATIENT
  Age: 2 Day
  Sex: Male
  Weight: 3.83 kg

DRUGS (5)
  1. ESCITALOPRAM OXALATE [Suspect]
     Dosage: TRANSPLACENTAL
     Dates: end: 20111126
  2. AMITRIPTYLINE HCL [Suspect]
     Dosage: 1 DOSAGE FORM (1 DOSAGE FORMS, 1 IN 1 D), TRANSPLACENTAL
     Route: 064
  3. OXAZEPAM [Suspect]
     Dosage: 20 MG DAILY UP TO THIRD QUARTER (20 MG, 1 IN 1 D), TRANSPLACENTAL
     Route: 064
  4. PRAZEPAM [Suspect]
     Dosage: SWITCHED TO OXAZEPAM AT THE THIRD QUARTER, TRANSPLACENTAL
     Route: 064
  5. CHLORPROMAZINE [Suspect]
     Dosage: 75 MG DAILY BEFORE THIRD QUARTER OF PREGNANCY (75 MG, 1 IN 1 D), TRANSPLACENTAL
     Route: 064

REACTIONS (7)
  - DYSTONIA [None]
  - HYPERTONIA NEONATAL [None]
  - REGURGITATION [None]
  - RETCHING [None]
  - AGITATION NEONATAL [None]
  - MATERNAL DRUGS AFFECTING FOETUS [None]
  - FLATULENCE [None]
